FAERS Safety Report 11856330 (Version 1)
Quarter: 2015Q4

REPORT INFORMATION
  Report Type: Report from Study
  Country: US (occurrence: JP)
  Receive Date: 20151221
  Receipt Date: 20151221
  Transmission Date: 20160305
  Serious: Yes (Hospitalization, Other)
  Sender: FDA-Public Use
  Company Number: JP-AKRON, INC.-1045722

PATIENT
  Age: 48 Year
  Sex: Male

DRUGS (3)
  1. AZASITE?? (AZITHROMYCIN OPHTHALMIC SOLUTION) [Suspect]
     Active Substance: AZITHROMYCIN MONOHYDRATE
     Indication: CONJUNCTIVITIS BACTERIAL
     Route: 047
     Dates: start: 20150929, end: 20151006
  2. SERENACE (HALOPERIDOL) [Concomitant]
     Active Substance: HALOPERIDOL
  3. DEPAKENE-R (SODIUM VALPROATE) [Concomitant]
     Active Substance: VALPROATE SODIUM

REACTIONS (5)
  - Aspartate aminotransferase increased [Unknown]
  - Schizophrenia [Unknown]
  - Blood creatine phosphokinase increased [Unknown]
  - Alanine aminotransferase increased [Unknown]
  - Blood lactate dehydrogenase increased [Unknown]

NARRATIVE: CASE EVENT DATE: 20151007
